FAERS Safety Report 9187729 (Version 1)
Quarter: 2013Q1

REPORT INFORMATION
  Report Type: Spontaneous
  Country: US (occurrence: US)
  Receive Date: 20130325
  Receipt Date: 20130325
  Transmission Date: 20140127
  Serious: Yes (Death)
  Sender: FDA-Public Use
  Company Number: US-ABBOTT-13P-163-1066453-00

PATIENT
  Age: 83 Year
  Sex: Male

DRUGS (11)
  1. MARINOL [Suspect]
     Indication: NAUSEA
     Dosage: AT BEDTIME
     Dates: start: 20121231, end: 20130313
  2. MARINOL [Suspect]
     Indication: HYPERCALCAEMIA
  3. ALDACTONE [Concomitant]
  4. COREG [Concomitant]
  5. LASIX [Concomitant]
  6. LEVOTHYROXINE [Concomitant]
  7. MEGASTROL [Concomitant]
     Dates: start: 201301
  8. ONDANSETRON [Concomitant]
  9. CENTRUM SILVER [Concomitant]
  10. IRON [Concomitant]
  11. VITAMIN C [Concomitant]

REACTIONS (1)
  - Death [Fatal]
